FAERS Safety Report 16244893 (Version 2)
Quarter: 2020Q2

REPORT INFORMATION
  Report Type: Spontaneous
  Country: US (occurrence: US)
  Receive Date: 20190426
  Receipt Date: 20200515
  Transmission Date: 20200713
  Serious: Yes (Death, Hospitalization)
  Sender: FDA-Public Use
  Company Number: US-JNJFOC-20190420845

PATIENT
  Age: 91 Year
  Sex: Female

DRUGS (3)
  1. XARELTO [Suspect]
     Active Substance: RIVAROXABAN
     Indication: DEEP VEIN THROMBOSIS
     Route: 048
     Dates: start: 20170629, end: 20170706
  2. ELIQUIS [Suspect]
     Active Substance: APIXABAN
     Indication: DEEP VEIN THROMBOSIS
     Dosage: THERAPY START DATE: 2017?THERAPY END DATE: /JUL/2017
     Route: 065
  3. LOVENOX [Suspect]
     Active Substance: ENOXAPARIN SODIUM
     Indication: DEEP VEIN THROMBOSIS
     Dosage: THERAPY START DATE: 2017?THERAPY END DATE: 2017
     Route: 065

REACTIONS (5)
  - Post procedural haemorrhage [Fatal]
  - Off label use [Unknown]
  - Wound haemorrhage [Fatal]
  - Underdose [Unknown]
  - Internal haemorrhage [Fatal]

NARRATIVE: CASE EVENT DATE: 20170629
